FAERS Safety Report 13559458 (Version 2)
Quarter: 2017Q2

REPORT INFORMATION
  Report Type: Spontaneous
  Country: CN (occurrence: CN)
  Receive Date: 20170518
  Receipt Date: 20170612
  Transmission Date: 20170830
  Serious: Yes (Hospitalization, Other)
  Sender: FDA-Public Use
  Company Number: CN-009507513-1705CHN006890

PATIENT
  Age: 25 Year
  Sex: Male
  Weight: 80 kg

DRUGS (1)
  1. DIPROSPAN [Suspect]
     Active Substance: BETAMETHASONE DIPROPIONATE\BETAMETHASONE SODIUM PHOSPHATE
     Indication: FOLLICULITIS
     Dosage: 7 MG, QD
     Route: 030
     Dates: start: 20170223, end: 20170223

REACTIONS (3)
  - Hypoaesthesia [Recovering/Resolving]
  - Hypokalaemia [Recovering/Resolving]
  - Asthenia [Recovering/Resolving]

NARRATIVE: CASE EVENT DATE: 20170223
